FAERS Safety Report 12908906 (Version 1)
Quarter: 2016Q4

REPORT INFORMATION
  Report Type: Spontaneous
  Country: US (occurrence: US)
  Receive Date: 20161103
  Receipt Date: 20161103
  Transmission Date: 20170207
  Serious: No
  Sender: FDA-Public Use
  Company Number: US-JAZZ-2016-US-016608

PATIENT
  Sex: Female

DRUGS (13)
  1. B COMPLEX WITH VITAMIN C [Concomitant]
  2. FERROUS GLUCONATE [Concomitant]
     Active Substance: FERROUS GLUCONATE
  3. LISINOPRIL. [Concomitant]
     Active Substance: LISINOPRIL
  4. RITALIN [Concomitant]
     Active Substance: METHYLPHENIDATE HYDROCHLORIDE
  5. XYREM [Suspect]
     Active Substance: SODIUM OXYBATE
     Indication: NARCOLEPSY
     Dosage: 3 G, BID
     Route: 048
     Dates: start: 200712, end: 200811
  6. XYREM [Suspect]
     Active Substance: SODIUM OXYBATE
     Dosage: 3 G, BID
     Route: 048
     Dates: start: 201411, end: 201411
  7. MULTIVITAMIN [Concomitant]
     Active Substance: VITAMINS
  8. SINGULAIR [Concomitant]
     Active Substance: MONTELUKAST SODIUM
  9. XYREM [Suspect]
     Active Substance: SODIUM OXYBATE
     Indication: CATAPLEXY
     Dosage: 4.5 G, BID
     Route: 048
     Dates: start: 200811, end: 2014
  10. XYREM [Suspect]
     Active Substance: SODIUM OXYBATE
     Dosage: 3.75 G, BID
     Route: 048
     Dates: start: 201411, end: 201412
  11. XYREM [Suspect]
     Active Substance: SODIUM OXYBATE
     Dosage: 4.5 G, BID
     Route: 048
     Dates: start: 201412
  12. HYDROCODONE BITARTRATE AND ACETAMINOPHEN [Concomitant]
     Active Substance: ACETAMINOPHEN\HYDROCODONE BITARTRATE
  13. NUVIGIL [Concomitant]
     Active Substance: ARMODAFINIL

REACTIONS (6)
  - Eczema [Not Recovered/Not Resolved]
  - Insomnia [Not Recovered/Not Resolved]
  - Biopsy skin [Unknown]
  - Feeling abnormal [Not Recovered/Not Resolved]
  - Fatigue [Unknown]
  - Stress [Not Recovered/Not Resolved]
